FAERS Safety Report 7207826-X (Version None)
Quarter: 2011Q1

REPORT INFORMATION
  Report Type: 
  Country: None (occurrence: None)
  Receive Date: 20110104
  Receipt Date: 20101227
  Transmission Date: 20110831
  Serious: Yes (Hospitalization)
  Sender: FDA-Public Use
  Company Number: US-BIOGENIDEC-2010BI041185

PATIENT
  Sex: Male

DRUGS (26)
  1. FEXOFENADINE HCL [Concomitant]
  2. FLUTICASONE PROPIONATE [Concomitant]
     Route: 006
  3. SUPER B COMPLEX [Concomitant]
  4. VITAMIN B-12 [Concomitant]
  5. OXYBUTYNIN CHLORIDE [Concomitant]
  6. CYANOCOBALAMIN [Concomitant]
     Route: 030
  7. ACETAMINOPHEN AND HYDROCODONE BITARTRATE [Concomitant]
  8. SIMVASTATIN [Concomitant]
  9. ACETAMINOPHEN [Concomitant]
  10. LEXAPRO [Concomitant]
  11. LIDODERM [Concomitant]
     Route: 061
  12. ALPRAZOLAM [Concomitant]
  13. GABAPENTIN [Concomitant]
  14. PERCOCET [Concomitant]
  15. ALEVE [Concomitant]
  16. UNKNOWN MEDICATION [Concomitant]
  17. VALIUM [Concomitant]
  18. AVONEX [Suspect]
     Indication: MULTIPLE SCLEROSIS
     Route: 030
     Dates: start: 19960504
  19. EPIPEN [Concomitant]
  20. LORATADINE [Concomitant]
  21. MULTI-VITAMIN [Concomitant]
  22. VITAMIN D [Concomitant]
  23. CYCLOBENZRAPINE HCL [Concomitant]
  24. DOXAZOSIN MESYLATE [Concomitant]
  25. EXCEDRIN (MIGRAINE) [Concomitant]
  26. LOVAZA [Concomitant]

REACTIONS (3)
  - INTERVERTEBRAL DISC DEGENERATION [None]
  - ARTHRITIS [None]
  - ARTHROPATHY [None]
